FAERS Safety Report 13147270 (Version 3)
Quarter: 2017Q1

REPORT INFORMATION
  Report Type: Spontaneous
  Country: DE (occurrence: DE)
  Receive Date: 20170125
  Receipt Date: 20170208
  Transmission Date: 20170428
  Serious: Yes (Hospitalization, Disabling)
  Sender: FDA-Public Use
  Company Number: DE-TAKEDA-2017TEU000201

PATIENT
  Age: 61 Year
  Sex: Female

DRUGS (4)
  1. THYRONAJOD [Concomitant]
     Active Substance: LEVOTHYROXINE SODIUM\POTASSIUM IODIDE
     Dosage: UNK
  2. NOVAMINSULFON [Concomitant]
     Active Substance: METAMIZOLE
     Indication: POSTOPERATIVE CARE
     Dosage: 40 GTT, TID
     Dates: start: 20161214, end: 20161217
  3. OXYCODONE [Concomitant]
     Active Substance: OXYCODONE
     Indication: POSTOPERATIVE CARE
     Dosage: 10 MG, BID
     Dates: start: 20161213, end: 20161215
  4. TACHOSIL [Suspect]
     Active Substance: FIBRINOGEN HUMAN\THROMBIN HUMAN
     Indication: TISSUE SEALING
     Dosage: UNK
     Route: 065
     Dates: start: 20161213, end: 20161222

REACTIONS (4)
  - Product quality issue [Unknown]
  - Brain injury [Recovering/Resolving]
  - Incision site complication [Recovering/Resolving]
  - Hemiparesis [Recovered/Resolved]

NARRATIVE: CASE EVENT DATE: 20161219
